FAERS Safety Report 19516548 (Version 1)
Quarter: 2021Q3

REPORT INFORMATION
  Report Type: Spontaneous
  Country: US (occurrence: US)
  Receive Date: 20210709
  Receipt Date: 20210709
  Transmission Date: 20211014
  Serious: No
  Sender: FDA-Public Use
  Company Number: US-ASTELLAS-2020US040825

PATIENT
  Age: 84 Year
  Sex: Female

DRUGS (1)
  1. MYRBETRIQ [Suspect]
     Active Substance: MIRABEGRON
     Indication: PRODUCT USED FOR UNKNOWN INDICATION
     Route: 065
     Dates: start: 202011

REACTIONS (5)
  - Swelling face [Unknown]
  - Pruritus [Unknown]
  - Scratch [Unknown]
  - Dermatitis [Unknown]
  - Skin irritation [Unknown]

NARRATIVE: CASE EVENT DATE: 202011
